FAERS Safety Report 10726446 (Version 2)
Quarter: 2015Q1

REPORT INFORMATION
  Report Type: Report from Study
  Country: US (occurrence: US)
  Receive Date: 20150121
  Receipt Date: 20150310
  Transmission Date: 20150721
  Serious: Yes (Life-Threatening, Hospitalization, Disabling, Other)
  Sender: FDA-Public Use
  Company Number: PHEH2015US001525

PATIENT
  Sex: Male

DRUGS (2)
  1. NEORAL [Suspect]
     Active Substance: CYCLOSPORINE
     Indication: PRODUCT USED FOR UNKNOWN INDICATION
     Dosage: 125 MG, BID
     Route: 048
  2. NEORAL [Suspect]
     Active Substance: CYCLOSPORINE
     Dosage: 75 MG,
     Route: 048

REACTIONS (8)
  - Pneumonia [Not Recovered/Not Resolved]
  - Immunosuppressant drug level decreased [Unknown]
  - Influenza [Not Recovered/Not Resolved]
  - Immunosuppressant drug level increased [Unknown]
  - Fluid retention [Not Recovered/Not Resolved]
  - Cardiac failure [Not Recovered/Not Resolved]
  - Blood pressure increased [Not Recovered/Not Resolved]
  - Acute kidney injury [Unknown]
